FAERS Safety Report 4273200-1 (Version None)
Quarter: 2004Q1

REPORT INFORMATION
  Report Type: 
  Country: None (occurrence: None)
  Receive Date: 20040116
  Receipt Date: 20040105
  Transmission Date: 20041129
  Serious: Yes (Hospitalization)
  Sender: FDA-Public Use
  Company Number: FR-BRISTOL-MYERS SQUIBB COMPANY-12470878

PATIENT
  Age: 37 Year
  Sex: Male

DRUGS (5)
  1. VIDEX EC [Suspect]
     Indication: HIV INFECTION
     Dosage: THERAPY INTERRUPTED FROM MAR-2003 TO APR-2003.
     Route: 048
     Dates: start: 20030215, end: 20030915
  2. VIREAD [Suspect]
     Indication: HIV INFECTION
     Dosage: THERAPY INTERRUPTED FROM MAR-2003 TO APR-2003
     Route: 048
     Dates: start: 20030215, end: 20030915
  3. SUSTIVA [Concomitant]
     Indication: HIV INFECTION
     Dosage: THERAPY INTERRUPTED FROM MAR-2003 TO APR-2003,
     Route: 048
     Dates: start: 20030215
  4. KALETRA [Concomitant]
     Indication: HIV INFECTION
     Route: 048
     Dates: start: 20030215
  5. PROLEUKIN [Concomitant]
     Dates: start: 20030306, end: 20030906

REACTIONS (3)
  - FANCONI SYNDROME ACQUIRED [None]
  - HYPOPHOSPHATAEMIA [None]
  - MALAISE [None]
